FAERS Safety Report 9928704 (Version 1)
Quarter: 2014Q1

REPORT INFORMATION
  Report Type: Spontaneous
  Country: GB (occurrence: None)
  Receive Date: 20140224
  Receipt Date: 20140224
  Transmission Date: 20141002
  Serious: Yes (Death)
  Sender: FDA-Public Use
  Company Number: 2014GB00126

PATIENT
  Sex: Female

DRUGS (4)
  1. EPIRUBICIN [Suspect]
  2. GEMCITABINE (GEMCITABINE) INJECTION [Suspect]
     Indication: BREAST CANCER
     Dosage: 2000 MG/M2, ONCE EVERY 14 DAYS
  3. CYCLOPHOSPHAMIDE (CYCLOPHOSPHAMIDE) [Suspect]
     Indication: BREAST CANCER
     Dosage: 600 MG/M2, ONCE EVERY 21 DAYS
  4. PACLITAXEL (PACLITAXEL) [Suspect]
     Indication: BREAST CANCER

REACTIONS (2)
  - Neutropenic sepsis [None]
  - Pneumonia [None]
